FAERS Safety Report 12867139 (Version 1)
Quarter: 2016Q4

REPORT INFORMATION
  Report Type: Spontaneous
  Country: US (occurrence: US)
  Receive Date: 20161020
  Receipt Date: 20161020
  Transmission Date: 20170207
  Serious: No
  Sender: FDA-Public Use
  Company Number: US-JAZZ-2016-US-014848

PATIENT
  Age: 40 Year
  Sex: Female

DRUGS (38)
  1. XYREM [Suspect]
     Active Substance: SODIUM OXYBATE
     Dosage: 4 G, BID
     Route: 048
     Dates: start: 201311, end: 201405
  2. DYNACIN [Concomitant]
     Active Substance: MINOCYCLINE HYDROCHLORIDE
  3. PROPRANOLOL [Concomitant]
     Active Substance: PROPRANOLOL\PROPRANOLOL HYDROCHLORIDE
  4. REMERON [Concomitant]
     Active Substance: MIRTAZAPINE
  5. XANAX [Concomitant]
     Active Substance: ALPRAZOLAM
  6. CYCLOBENZAPRINE [Concomitant]
     Active Substance: CYCLOBENZAPRINE
  7. ZALEPLON. [Concomitant]
     Active Substance: ZALEPLON
  8. BENADRYL ALLERGY [Concomitant]
     Active Substance: DIPHENHYDRAMINE HYDROCHLORIDE
  9. DIFFERIN [Concomitant]
     Active Substance: ADAPALENE
  10. HALCION [Concomitant]
     Active Substance: TRIAZOLAM
  11. LAMICTAL [Concomitant]
     Active Substance: LAMOTRIGINE
  12. XYREM [Suspect]
     Active Substance: SODIUM OXYBATE
     Indication: NARCOLEPSY
     Dosage: 2.25 G, BID
     Route: 048
     Dates: start: 200709, end: 200711
  13. XYREM [Suspect]
     Active Substance: SODIUM OXYBATE
     Indication: CATAPLEXY
     Dosage: DOSE ADJUSTMENTS
     Route: 048
     Dates: start: 200711, end: 200804
  14. DOXEPIN [Concomitant]
     Active Substance: DOXEPIN
  15. MAGNESIUM OXIDE. [Concomitant]
     Active Substance: MAGNESIUM OXIDE
  16. KLOR-CON [Concomitant]
     Active Substance: POTASSIUM CHLORIDE
  17. TRAZODONE HYDROCHLORIDE. [Concomitant]
     Active Substance: TRAZODONE HYDROCHLORIDE
  18. ACANYA [Concomitant]
     Active Substance: BENZOYL PEROXIDE\CLINDAMYCIN PHOSPHATE
  19. AMBIEN [Concomitant]
     Active Substance: ZOLPIDEM TARTRATE
  20. GABAPENTIN. [Concomitant]
     Active Substance: GABAPENTIN
  21. HYDROCHLOROTHIAZIDE. [Concomitant]
     Active Substance: HYDROCHLOROTHIAZIDE
  22. RANITIDINE. [Concomitant]
     Active Substance: RANITIDINE
  23. CALCIUM +D [Concomitant]
     Active Substance: CALCIUM\VITAMIN D
  24. MELATONIN [Concomitant]
     Active Substance: MELATONIN
  25. RETIN-A [Concomitant]
     Active Substance: TRETINOIN
  26. SPIRONOLACTONE. [Concomitant]
     Active Substance: SPIRONOLACTONE
  27. ROBAXIN [Concomitant]
     Active Substance: METHOCARBAMOL
  28. XYREM [Suspect]
     Active Substance: SODIUM OXYBATE
     Dosage: 3 G, BID
     Route: 048
     Dates: start: 201310, end: 201311
  29. XYREM [Suspect]
     Active Substance: SODIUM OXYBATE
     Dosage: 4.5 G, BID
     Route: 048
     Dates: start: 201405
  30. MELOXICAM. [Concomitant]
     Active Substance: MELOXICAM
  31. BACLOFEN. [Concomitant]
     Active Substance: BACLOFEN
  32. CEFADROXIL. [Concomitant]
     Active Substance: CEFADROXIL
  33. XYREM [Suspect]
     Active Substance: SODIUM OXYBATE
     Dosage: 4.5 G, BID
     Route: 048
     Dates: start: 200804, end: 2010
  34. EFFEXOR [Suspect]
     Active Substance: VENLAFAXINE HYDROCHLORIDE
     Indication: PRODUCT USED FOR UNKNOWN INDICATION
     Dosage: UNK
     Dates: start: 20160719
  35. LEXAPRO [Concomitant]
     Active Substance: ESCITALOPRAM OXALATE
  36. PROVIGIL [Concomitant]
     Active Substance: MODAFINIL
  37. RISPERDAL [Concomitant]
     Active Substance: RISPERIDONE
  38. MULTIVITAMIN [Concomitant]
     Active Substance: VITAMINS

REACTIONS (2)
  - Malaise [Unknown]
  - Back injury [Unknown]

NARRATIVE: CASE EVENT DATE: 201607
